FAERS Safety Report 12979254 (Version 1)
Quarter: 2016Q4

REPORT INFORMATION
  Report Type: Spontaneous
  Country: PE (occurrence: PE)
  Receive Date: 20161128
  Receipt Date: 20161128
  Transmission Date: 20170207
  Serious: Yes (Disabling)
  Sender: FDA-Public Use
  Company Number: PE-VIFOR (INTERNATIONAL) INC.-VIT-2016-07964

PATIENT
  Age: 89 Year
  Sex: Male

DRUGS (1)
  1. MIRCERA [Suspect]
     Active Substance: METHOXY POLYETHYLENE GLYCOL-EPOETIN BETA
     Indication: NEPHROGENIC ANAEMIA
     Route: 058
     Dates: start: 20161010

REACTIONS (1)
  - Abasia [Not Recovered/Not Resolved]

NARRATIVE: CASE EVENT DATE: 2016
